FAERS Safety Report 8859257 (Version 73)
Quarter: 2021Q2

REPORT INFORMATION
  Report Type: Other
  Country: CA (occurrence: CA)
  Receive Date: 20121024
  Receipt Date: 20210624
  Transmission Date: 20210717
  Serious: Yes (Life-Threatening, Hospitalization, Other)
  Sender: FDA-Public Use
  Company Number: CA-ROCHE-1109752

PATIENT
  Age: 67 Year
  Sex: Female
  Weight: 52.7 kg

DRUGS (27)
  1. ACTEMRA [Suspect]
     Active Substance: TOCILIZUMAB
     Route: 042
     Dates: start: 20140226, end: 20140729
  2. ACTEMRA [Suspect]
     Active Substance: TOCILIZUMAB
     Route: 042
     Dates: start: 20110322, end: 20200414
  3. CORTISONE ACETATE. [Suspect]
     Active Substance: CORTISONE ACETATE
     Indication: ARTHRALGIA
     Route: 065
  4. VITAMIN C [Concomitant]
     Active Substance: ASCORBIC ACID
     Indication: PRODUCT USED FOR UNKNOWN INDICATION
  5. PREDNISONE. [Concomitant]
     Active Substance: PREDNISONE
     Indication: PRODUCT USED FOR UNKNOWN INDICATION
     Dates: start: 2010
  6. PRIDINOL [Concomitant]
     Active Substance: PRIDINOL
  7. ACTEMRA [Suspect]
     Active Substance: TOCILIZUMAB
     Dosage: 22/MAR/2016
     Route: 042
     Dates: start: 20140826, end: 20160323
  8. SOLU?MEDROL [Concomitant]
     Active Substance: METHYLPREDNISOLONE SODIUM SUCCINATE
     Dates: start: 20080205
  9. ACTEMRA [Suspect]
     Active Substance: TOCILIZUMAB
     Dosage: INFUSION NO.89
     Route: 042
     Dates: start: 20180614
  10. LORATADINE. [Concomitant]
     Active Substance: LORATADINE
     Indication: PRODUCT USED FOR UNKNOWN INDICATION
  11. LURASIDONE [Concomitant]
     Active Substance: LURASIDONE
  12. ACTEMRA [Suspect]
     Active Substance: TOCILIZUMAB
     Route: 042
     Dates: start: 20160419, end: 20170222
  13. ACTEMRA [Suspect]
     Active Substance: TOCILIZUMAB
     Dosage: INFUSION NO.88
     Route: 042
     Dates: start: 20180419
  14. ACTEMRA [Suspect]
     Active Substance: TOCILIZUMAB
     Indication: RHEUMATOID ARTHRITIS
     Dosage: ACTSC5933
     Route: 058
     Dates: start: 20200511, end: 202006
  15. METHOTREXATE. [Concomitant]
     Active Substance: METHOTREXATE
     Indication: PRODUCT USED FOR UNKNOWN INDICATION
     Route: 058
     Dates: start: 20080205
  16. ACTEMRA [Suspect]
     Active Substance: TOCILIZUMAB
     Indication: RHEUMATOID ARTHRITIS
     Route: 042
     Dates: start: 20110322, end: 20140124
  17. ACTEMRA [Suspect]
     Active Substance: TOCILIZUMAB
     Route: 042
     Dates: start: 20201202
  18. ACTEMRA [Suspect]
     Active Substance: TOCILIZUMAB
     Route: 042
     Dates: start: 20180712
  19. ACTEMRA [Suspect]
     Active Substance: TOCILIZUMAB
     Route: 042
     Dates: start: 20190412, end: 20200312
  20. ACTEMRA [Suspect]
     Active Substance: TOCILIZUMAB
     Route: 042
     Dates: start: 20200414, end: 20201104
  21. RAMIPRIL. [Concomitant]
     Active Substance: RAMIPRIL
     Indication: PRODUCT USED FOR UNKNOWN INDICATION
  22. LURASIDONE HYDROCHLORIDE. [Concomitant]
     Active Substance: LURASIDONE HYDROCHLORIDE
     Dates: start: 201408
  23. TYLENOL WITH CODEINE [Concomitant]
     Active Substance: ACETAMINOPHEN\CODEINE PHOSPHATE
     Indication: PRODUCT USED FOR UNKNOWN INDICATION
  24. LOVENOX [Concomitant]
     Active Substance: ENOXAPARIN SODIUM
  25. ACTEMRA [Suspect]
     Active Substance: TOCILIZUMAB
     Route: 042
     Dates: start: 20170322, end: 20180222
  26. ACTEMRA [Suspect]
     Active Substance: TOCILIZUMAB
     Route: 042
     Dates: start: 20180322, end: 20190311
  27. QUETIAPINE. [Concomitant]
     Active Substance: QUETIAPINE
     Indication: PRODUCT USED FOR UNKNOWN INDICATION

REACTIONS (47)
  - Silent myocardial infarction [Unknown]
  - Oral herpes [Unknown]
  - Lower respiratory tract infection [Recovered/Resolved]
  - Musculoskeletal stiffness [Not Recovered/Not Resolved]
  - Oropharyngeal pain [Recovered/Resolved]
  - Sunburn [Recovering/Resolving]
  - Blood pressure diastolic decreased [Unknown]
  - Depression [Not Recovered/Not Resolved]
  - Arthralgia [Not Recovered/Not Resolved]
  - Oxygen saturation decreased [Unknown]
  - Gastroenteritis viral [Recovered/Resolved]
  - Weight decreased [Unknown]
  - Blood pressure increased [Unknown]
  - Ill-defined disorder [Recovering/Resolving]
  - Off label use [Unknown]
  - Urinary tract infection [Recovered/Resolved]
  - Stress [Not Recovered/Not Resolved]
  - Oxygen saturation decreased [Unknown]
  - Blood pressure systolic increased [Unknown]
  - Blood pressure systolic abnormal [Not Recovered/Not Resolved]
  - Weight decreased [Unknown]
  - Gait inability [Unknown]
  - Tobacco withdrawal symptoms [Unknown]
  - Weight increased [Not Recovered/Not Resolved]
  - Weight decreased [Not Recovered/Not Resolved]
  - Hypotension [Unknown]
  - Bipolar disorder [Unknown]
  - Type 2 diabetes mellitus [Not Recovered/Not Resolved]
  - Osteoarthritis [Not Recovered/Not Resolved]
  - Hepatic enzyme increased [Not Recovered/Not Resolved]
  - Pain in extremity [Unknown]
  - Blood pressure fluctuation [Unknown]
  - Rheumatoid arthritis [Not Recovered/Not Resolved]
  - Spondylitis [Not Recovered/Not Resolved]
  - Nasopharyngitis [Not Recovered/Not Resolved]
  - Disability assessment scale score increased [Recovering/Resolving]
  - Hip fracture [Unknown]
  - Fungal skin infection [Unknown]
  - Hair disorder [Recovered/Resolved]
  - Infusion related reaction [Unknown]
  - Pneumonia [Unknown]
  - Hypotension [Unknown]
  - Ear infection [Recovered/Resolved]
  - Gait inability [Not Recovered/Not Resolved]
  - Oxygen saturation decreased [Unknown]
  - Arthralgia [Unknown]
  - Fall [Unknown]

NARRATIVE: CASE EVENT DATE: 2012
